FAERS Safety Report 9742629 (Version 2)
Quarter: 2015Q3

REPORT INFORMATION
  Report Type: Spontaneous
  Country: US (occurrence: US)
  Receive Date: 20131210
  Receipt Date: 20150804
  Transmission Date: 20151125
  Serious: No
  Sender: FDA-Public Use
  Company Number: US-GILEAD-2009-0024838

PATIENT
  Age: 59 Year
  Sex: Female
  Weight: 90.7 kg

DRUGS (10)
  1. CLARITIN [Concomitant]
     Active Substance: LORATADINE
  2. VYTORIN [Concomitant]
     Active Substance: EZETIMIBE\SIMVASTATIN
  3. AMARYL [Concomitant]
     Active Substance: GLIMEPIRIDE
  4. REVATIO [Concomitant]
     Active Substance: SILDENAFIL CITRATE
  5. TYLENOL [Concomitant]
     Active Substance: ACETAMINOPHEN
  6. SERTRALINE HCL [Concomitant]
     Active Substance: SERTRALINE HYDROCHLORIDE
  7. LETAIRIS [Suspect]
     Active Substance: AMBRISENTAN
     Indication: PULMONARY ARTERIAL HYPERTENSION
     Route: 048
     Dates: start: 20090925
  8. ATACAND [Concomitant]
     Active Substance: CANDESARTAN CILEXETIL
  9. GLUCOPHAGE XR [Concomitant]
     Active Substance: METFORMIN HYDROCHLORIDE
  10. OMEGA 3 [Concomitant]
     Active Substance: OMEGA-3 FATTY ACIDS

REACTIONS (3)
  - Headache [Unknown]
  - Peripheral swelling [Unknown]
  - Dyspnoea [Unknown]
